FAERS Safety Report 14967412 (Version 12)
Quarter: 2025Q2

REPORT INFORMATION
  Report Type: Report from Study
  Country: US (occurrence: US)
  Receive Date: 20180604
  Receipt Date: 20250425
  Transmission Date: 20250717
  Serious: Yes (Other)
  Sender: TAKEDA
  Company Number: US-SHIRE-US201820673

PATIENT
  Age: 47 Year
  Sex: Female
  Weight: 68 kg

DRUGS (31)
  1. HUMAN IMMUNOGLOBULIN G\HYALURONIDASE RECOMBINANT HUMAN [Suspect]
     Active Substance: HUMAN IMMUNOGLOBULIN G\HYALURONIDASE (HUMAN RECOMBINANT)
     Indication: Primary immunodeficiency syndrome
     Dosage: 30 GRAM, Q3WEEKS
     Dates: start: 20150720
  2. HUMAN IMMUNOGLOBULIN G\HYALURONIDASE RECOMBINANT HUMAN [Suspect]
     Active Substance: HUMAN IMMUNOGLOBULIN G\HYALURONIDASE (HUMAN RECOMBINANT)
     Indication: Immunodeficiency common variable
     Dosage: 30 GRAM, Q3WEEKS
  3. CHANTIX [Concomitant]
     Active Substance: VARENICLINE TARTRATE
     Indication: Smoking cessation therapy
  4. Laxapront [Concomitant]
  5. LOSARTAN [Concomitant]
     Active Substance: LOSARTAN
  6. AMITRIPTYLINE [Concomitant]
     Active Substance: AMITRIPTYLINE
  7. DIPHENHYDRAMINE HYDROCHLORIDE [Concomitant]
     Active Substance: DIPHENHYDRAMINE HYDROCHLORIDE
  8. VYVANSE [Concomitant]
     Active Substance: LISDEXAMFETAMINE DIMESYLATE
  9. ALBUTEROL SULFATE [Concomitant]
     Active Substance: ALBUTEROL SULFATE
  10. VITAMIN D3 [Concomitant]
     Active Substance: CHOLECALCIFEROL
  11. EPINEPHRINE [Concomitant]
     Active Substance: EPINEPHRINE
  12. DULOXETINE HYDROCHLORIDE [Concomitant]
     Active Substance: DULOXETINE HYDROCHLORIDE
  13. FLUTICASONE PROPIONATE [Concomitant]
     Active Substance: FLUTICASONE PROPIONATE
  14. CELEBREX [Concomitant]
     Active Substance: CELECOXIB
  15. TRELEGY ELLIPTA [Concomitant]
     Active Substance: FLUTICASONE FUROATE\UMECLIDINIUM BROMIDE\VILANTEROL TRIFENATATE
  16. GABAPENTIN [Concomitant]
     Active Substance: GABAPENTIN
  17. TRAMADOL HCL [Concomitant]
     Active Substance: TRAMADOL HYDROCHLORIDE
  18. ZYRTEC [Concomitant]
     Active Substance: CETIRIZINE HYDROCHLORIDE
  19. FIORICET [Concomitant]
     Active Substance: ACETAMINOPHEN\BUTALBITAL\CAFFEINE
  20. MIGRAINE RELIEF [Concomitant]
     Active Substance: CURCUMA AROMATICA ROOT\FEVERFEW\GINGER\INDIAN FRANKINCENSE\TURMERIC
  21. ACETAMINOPHEN [Concomitant]
     Active Substance: ACETAMINOPHEN
  22. CYCLOBENZAPRINE HYDROCHLORIDE [Concomitant]
     Active Substance: CYCLOBENZAPRINE HYDROCHLORIDE
  23. RABEPRAZOLE SODIUM [Concomitant]
     Active Substance: RABEPRAZOLE SODIUM
  24. AIMOVIG [Concomitant]
     Active Substance: ERENUMAB-AOOE
  25. SODIUM CHLORIDE [Concomitant]
     Active Substance: SODIUM CHLORIDE
  26. RISPERIDONE [Concomitant]
     Active Substance: RISPERIDONE
  27. ALPRAZOLAM [Concomitant]
     Active Substance: ALPRAZOLAM
  28. ALBUTEROL SULFATE [Concomitant]
     Active Substance: ALBUTEROL SULFATE
  29. ROPINIROLE HYDROCHLORIDE [Concomitant]
     Active Substance: ROPINIROLE HYDROCHLORIDE
  30. COLLAGEN [Concomitant]
     Active Substance: COLLAGEN
  31. FISH OIL [Concomitant]
     Active Substance: FISH OIL

REACTIONS (16)
  - Cholelithiasis [Unknown]
  - Pneumonia [Not Recovered/Not Resolved]
  - Constipation [Unknown]
  - Haemorrhoids [Unknown]
  - Weight increased [Unknown]
  - Abdominal discomfort [Unknown]
  - Blood sodium decreased [Unknown]
  - Wrong technique in product usage process [Unknown]
  - Viral infection [Unknown]
  - Gastroenteritis viral [Unknown]
  - Product dose omission issue [Unknown]
  - Chronic obstructive pulmonary disease [Unknown]
  - Influenza [Unknown]
  - Atrioventricular block [Unknown]
  - Vertigo [Unknown]
  - Abdominal distension [Unknown]

NARRATIVE: CASE EVENT DATE: 20180101
